FAERS Safety Report 26140087 (Version 3)
Quarter: 2025Q4

REPORT INFORMATION
  Report Type: Spontaneous
  Country: JP (occurrence: JP)
  Receive Date: 20251210
  Receipt Date: 20251231
  Transmission Date: 20260118
  Serious: Yes (Hospitalization, Disabling, Other)
  Sender: MERCK SHARP & DOHME LLC
  Company Number: JP-009507513-2354651

PATIENT
  Age: 72 Year
  Sex: Male
  Weight: 76 kg

DRUGS (18)
  1. KEYTRUDA [Suspect]
     Active Substance: PEMBROLIZUMAB
     Indication: Squamous cell carcinoma of lung
     Dosage: TIME INTERVAL: TOTAL
     Route: 041
     Dates: start: 20250520, end: 20250520
  2. KEYTRUDA [Suspect]
     Active Substance: PEMBROLIZUMAB
     Indication: Squamous cell carcinoma of lung
     Dosage: TIME INTERVAL: TOTAL
     Route: 041
     Dates: start: 20250612, end: 20250612
  3. KEYTRUDA [Suspect]
     Active Substance: PEMBROLIZUMAB
     Indication: Squamous cell carcinoma of lung
     Dosage: TIME INTERVAL: TOTAL
     Route: 041
     Dates: start: 20250709, end: 20250709
  4. KEYTRUDA [Suspect]
     Active Substance: PEMBROLIZUMAB
     Indication: Squamous cell carcinoma of lung
     Dosage: TIME INTERVAL: TOTAL
     Route: 041
     Dates: start: 20250912, end: 20250912
  5. KEYTRUDA [Suspect]
     Active Substance: PEMBROLIZUMAB
     Indication: Squamous cell carcinoma of lung
     Dosage: TIME INTERVAL: TOTAL
     Route: 041
     Dates: start: 20250925, end: 20250925
  6. KEYTRUDA [Suspect]
     Active Substance: PEMBROLIZUMAB
     Indication: Squamous cell carcinoma of lung
     Dosage: TIME INTERVAL: TOTAL
     Route: 041
     Dates: start: 20251016, end: 20251016
  7. CARBOPLATIN [Suspect]
     Active Substance: CARBOPLATIN
     Indication: Squamous cell carcinoma of lung
     Dosage: TIME INTERVAL: TOTAL: AUC6
     Dates: start: 20250520, end: 20250520
  8. CARBOPLATIN [Suspect]
     Active Substance: CARBOPLATIN
     Indication: Squamous cell carcinoma of lung
     Dosage: TIME INTERVAL: TOTAL: AUC6
     Dates: start: 20250612, end: 20250612
  9. CARBOPLATIN [Suspect]
     Active Substance: CARBOPLATIN
     Indication: Squamous cell carcinoma of lung
     Dosage: TIME INTERVAL: TOTAL: AUC6
     Dates: start: 20250709, end: 20250709
  10. CARBOPLATIN [Suspect]
     Active Substance: CARBOPLATIN
     Indication: Squamous cell carcinoma of lung
     Dosage: TIME INTERVAL: TOTAL: AUC6
     Dates: start: 20250912, end: 20250912
  11. PACLITAXEL [Suspect]
     Active Substance: PACLITAXEL
     Indication: Squamous cell carcinoma of lung
     Dosage: TIME INTERVAL: TOTAL
     Dates: start: 20250520, end: 20250520
  12. PACLITAXEL [Suspect]
     Active Substance: PACLITAXEL
     Indication: Squamous cell carcinoma of lung
     Dosage: TIME INTERVAL: TOTAL
     Dates: start: 20250612, end: 20250612
  13. PACLITAXEL [Suspect]
     Active Substance: PACLITAXEL
     Indication: Squamous cell carcinoma of lung
     Dosage: TIME INTERVAL: TOTAL
     Dates: start: 20250709, end: 20250709
  14. PACLITAXEL [Suspect]
     Active Substance: PACLITAXEL
     Indication: Squamous cell carcinoma of lung
     Dosage: TIME INTERVAL: TOTAL
     Dates: start: 20250912, end: 20250912
  15. TRELEGY ELLIPTA 100 [Concomitant]
     Route: 055
  16. Magmitt Tablets 330mg [Concomitant]
     Route: 048
  17. SENNOSIDE Tablets 12mg [Concomitant]
     Route: 048
  18. LEVOCETIRIZINE HYDROCHLORIDE [Concomitant]
     Active Substance: LEVOCETIRIZINE HYDROCHLORIDE
     Route: 048

REACTIONS (3)
  - Anti-glomerular basement membrane disease [Recovered/Resolved with Sequelae]
  - Immune-mediated hepatitis [Recovered/Resolved]
  - Immune-mediated nephritis [Recovered/Resolved with Sequelae]

NARRATIVE: CASE EVENT DATE: 20250805
